FAERS Safety Report 5612196-4 (Version None)
Quarter: 2008Q1

REPORT INFORMATION
  Report Type: 
  Country: None (occurrence: None)
  Receive Date: 20080204
  Receipt Date: 20080124
  Transmission Date: 20080703
  Serious: Yes (Hospitalization, Other)
  Sender: FDA-Public Use
  Company Number: US-NOVOPROD-255813

PATIENT
  Sex: Male
  Weight: 73 kg

DRUGS (1)
  1. NORDITROPIN [Suspect]
     Indication: GROWTH HORMONE DEFICIENCY
     Dosage: 4 MG, QD
     Route: 058
     Dates: start: 20011024

REACTIONS (1)
  - ULNA FRACTURE [None]
